FAERS Safety Report 6474762-6 (Version None)
Quarter: 2009Q4

REPORT INFORMATION
  Report Type: 
  Country: None (occurrence: None)
  Receive Date: 20091204
  Receipt Date: 20091123
  Transmission Date: 20100525
  Serious: Yes (Other)
  Sender: FDA-Public Use
  Company Number: FR-ELI_LILLY_AND_COMPANY-FR200911006148

PATIENT
  Age: 64 Year
  Sex: Male

DRUGS (4)
  1. BYETTA [Suspect]
     Indication: TYPE 2 DIABETES MELLITUS
     Dosage: 5 UG, 2/D
     Dates: start: 20081001
  2. BYETTA [Suspect]
     Dosage: 10 UG, 2/D
     Dates: end: 20090701
  3. DAONIL [Concomitant]
     Dosage: UNK, UNKNOWN
     Route: 065
  4. GLUCOPHAGE [Concomitant]
     Dosage: UNK, UNKNOWN
     Route: 065

REACTIONS (2)
  - HEPATIC NEOPLASM MALIGNANT [None]
  - NAUSEA [None]
